FAERS Safety Report 10982853 (Version 2)
Quarter: 2015Q4

REPORT INFORMATION
  Report Type: Spontaneous
  Country: US (occurrence: US)
  Receive Date: 20150403
  Receipt Date: 20151112
  Transmission Date: 20160304
  Serious: Yes (Death, Other)
  Sender: FDA-Public Use
  Company Number: US-ASTRAZENECA-2015SE29018

PATIENT
  Age: 845 Month
  Sex: Female
  Weight: 73.9 kg

DRUGS (18)
  1. BYETTA [Suspect]
     Active Substance: EXENATIDE
     Dosage: 5MCG/0.02ML PEN
     Route: 065
     Dates: start: 20080311
  2. ACETAMINOPHEN. [Concomitant]
     Active Substance: ACETAMINOPHEN
  3. PANTOPRAZOLE [Concomitant]
     Active Substance: PANTOPRAZOLE SODIUM
  4. DOCUSATE [Concomitant]
     Active Substance: DOCUSATE
  5. POTASSIUM [Concomitant]
     Active Substance: POTASSIUM
  6. VALSARTAN. [Concomitant]
     Active Substance: VALSARTAN
  7. JANUVIA [Suspect]
     Active Substance: SITAGLIPTIN PHOSPHATE
     Route: 065
     Dates: start: 200903, end: 200911
  8. ATORVASTATIN [Concomitant]
     Active Substance: ATORVASTATIN
     Dosage: 40 MG NIGHTLY
  9. AMARYL [Concomitant]
     Active Substance: GLIMEPIRIDE
     Route: 048
  10. BYETTA [Suspect]
     Active Substance: EXENATIDE
     Route: 065
     Dates: start: 200803, end: 201301
  11. JANUVIA [Suspect]
     Active Substance: SITAGLIPTIN PHOSPHATE
     Route: 065
     Dates: start: 20090317
  12. HYDROCODONE [Concomitant]
     Active Substance: HYDROCODONE
  13. BYETTA [Suspect]
     Active Substance: EXENATIDE
     Dosage: 10 MCG/0.04 ML
     Route: 065
     Dates: start: 20100218
  14. SIMVASTATIN. [Concomitant]
     Active Substance: SIMVASTATIN
  15. LANTUS [Concomitant]
     Active Substance: INSULIN GLARGINE
  16. GLYBURIDE. [Concomitant]
     Active Substance: GLYBURIDE
  17. HYDROCHLOROTHIAZIDE. [Concomitant]
     Active Substance: HYDROCHLOROTHIAZIDE
  18. POTASSIUM CHLORIDE. [Concomitant]
     Active Substance: POTASSIUM CHLORIDE

REACTIONS (2)
  - Metastases to liver [Unknown]
  - Adenocarcinoma pancreas [Fatal]

NARRATIVE: CASE EVENT DATE: 201303
